FAERS Safety Report 22075007 (Version 1)
Quarter: 2023Q1

REPORT INFORMATION
  Report Type: Spontaneous
  Country: US (occurrence: US)
  Receive Date: 20230308
  Receipt Date: 20230308
  Transmission Date: 20230418
  Serious: No
  Sender: FDA-Public Use
  Company Number: US-ALLERGAN-2206947US

PATIENT
  Sex: Female

DRUGS (1)
  1. ASACOL HD [Suspect]
     Active Substance: MESALAMINE
     Indication: Product used for unknown indication
     Dosage: 3 TABLETS A DAY
     Route: 048

REACTIONS (1)
  - Off label use [Unknown]
